FAERS Safety Report 5619725-5 (Version None)
Quarter: 2008Q1

REPORT INFORMATION
  Report Type: 
  Country: None (occurrence: None)
  Receive Date: 20080208
  Receipt Date: 20080102
  Transmission Date: 20080703
  Serious: No
  Sender: FDA-Public Use
  Company Number: A0692292A

PATIENT
  Age: 65 Year
  Sex: Male
  Weight: 68.2 kg

DRUGS (1)
  1. ALTABAX [Suspect]
     Route: 061
     Dates: start: 20071018, end: 20071022

REACTIONS (3)
  - APPLICATION SITE DISCHARGE [None]
  - APPLICATION SITE ERYTHEMA [None]
  - WOUND COMPLICATION [None]
